FAERS Safety Report 4473653-X (Version None)
Quarter: 2004Q3

REPORT INFORMATION
  Report Type: 
  Country: None (occurrence: None)
  Receive Date: 20040910
  Receipt Date: 20040630
  Transmission Date: 20050211
  Serious: No
  Sender: FDA-Public Use
  Company Number: 2004212509US

PATIENT
  Age: 72 Year
  Sex: Male
  Weight: 96.6 kg

DRUGS (2)
  1. BEXTRA [Suspect]
     Indication: ARTHRITIS
     Dosage: 10 MG, QD; UNKNOWN
     Route: 065
     Dates: start: 20040520
  2. BENADRYL [Concomitant]

REACTIONS (1)
  - CHROMATURIA [None]
